FAERS Safety Report 16464569 (Version 1)
Quarter: 2019Q2

REPORT INFORMATION
  Report Type: Spontaneous
  Country: SE (occurrence: SE)
  Receive Date: 20190621
  Receipt Date: 20190621
  Transmission Date: 20190711
  Serious: Yes (Hospitalization, Disabling)
  Sender: FDA-Public Use
  Company Number: SE-BAYER-2019-113623

PATIENT
  Age: 40 Year
  Sex: Female

DRUGS (23)
  1. PREDNISOLON ALTERNOVA [Concomitant]
     Active Substance: PREDNISOLONE
     Dosage: 2.5 MG, QD
     Dates: start: 20180405
  2. ADPORT [Concomitant]
     Active Substance: TACROLIMUS
     Dosage: UNK UNK, QD
     Dates: start: 20170602
  3. MYCOSTATIN [Concomitant]
     Active Substance: NYSTATIN
     Dosage: 1 ML, PRN
     Dates: start: 20090831
  4. OXYNORM [Concomitant]
     Active Substance: OXYCODONE HYDROCHLORIDE
     Dosage: 5 MG, PRN
     Dates: start: 20180626
  5. ADPORT [Concomitant]
     Active Substance: TACROLIMUS
     Dosage: 1 MG, QD
     Dates: start: 20171214
  6. NATRIUMBIKARBONAT [Concomitant]
     Active Substance: SODIUM BICARBONATE
     Dosage: 2 G, QD
     Dates: start: 20141113
  7. CIPROFLOXACIN. [Suspect]
     Active Substance: CIPROFLOXACIN
     Dosage: UNK
  8. CEFADROXIL SANDOZ [Concomitant]
     Active Substance: CEFADROXIL
     Dosage: UNK UNK, PRN
     Dates: start: 20140219
  9. MIRENA [Concomitant]
     Active Substance: LEVONORGESTREL
     Dosage: UNK
  10. AMOXICILLIN SANDOZ [Concomitant]
     Active Substance: AMOXICILLIN
     Dosage: 2000 MG, PRN
     Dates: start: 20171222
  11. CITODON [CODEINE PHOSPHATE HEMIHYDRATE;PARACETAMOL] [Concomitant]
     Active Substance: ACETAMINOPHEN\CODEINE PHOSPHATE
     Dosage: UNK UNK, PRN
     Dates: start: 20180808
  12. FOLSYRA EVOLAN [Concomitant]
     Dosage: 2.5 MG, QD
     Dates: start: 20170405
  13. ALLOPURINOL NORDIC DRUGS [Concomitant]
     Active Substance: ALLOPURINOL
     Dosage: 100 MG, QD
     Dates: start: 20140619
  14. MYCOPHENOLATE MOFETIL SANDOZ [Concomitant]
     Active Substance: MYCOPHENOLATE MOFETIL
     Dosage: 500 MG, QD
     Dates: start: 20170327
  15. ALVEDON [Concomitant]
     Active Substance: ACETAMINOPHEN
     Dosage: 3000 MG, QD
     Dates: start: 20180625
  16. LASIX [Concomitant]
     Active Substance: FUROSEMIDE
     Dosage: DAILY DOSE 480 MG
     Dates: start: 20160317
  17. AMLODIPINE [Concomitant]
     Active Substance: AMLODIPINE BESYLATE
     Dosage: 2.5 MG, QD
     Dates: start: 20180808
  18. ETALPHA [Concomitant]
     Active Substance: ALFACALCIDOL
     Dosage: 0.75 ?G, OW
     Dates: start: 20171123
  19. FURIX [CEFUROXIME] [Concomitant]
     Dosage: 500 MG, PRN
     Dates: start: 20141113
  20. DIMOR [Concomitant]
     Active Substance: LOPERAMIDE
     Dosage: 2 MG, PRN
     Dates: start: 20170914
  21. OMEPRAZOL TEVA [OMEPRAZOLE] [Concomitant]
     Dosage: 20 MG, QD
     Dates: start: 20150112
  22. KALIUMKLORID ORIFARM [Concomitant]
     Dosage: 3000 MG, QD
     Dates: start: 20170404
  23. METOPROLOL SANDOZ [METOPROLOL TARTRATE] [Concomitant]
     Dosage: 200 MG, QD
     Dates: start: 20150728

REACTIONS (10)
  - Adverse drug reaction [Not Recovered/Not Resolved]
  - Headache [Not Recovered/Not Resolved]
  - Dizziness [Not Recovered/Not Resolved]
  - Diplopia [Not Recovered/Not Resolved]
  - Groin pain [Not Recovered/Not Resolved]
  - Fatigue [Not Recovered/Not Resolved]
  - Vision blurred [Not Recovered/Not Resolved]
  - Myalgia [Not Recovered/Not Resolved]
  - Memory impairment [Not Recovered/Not Resolved]
  - Arthralgia [Not Recovered/Not Resolved]

NARRATIVE: CASE EVENT DATE: 2018
